FAERS Safety Report 6555845-9 (Version None)
Quarter: 2010Q1

REPORT INFORMATION
  Report Type: 
  Country: None (occurrence: None)
  Receive Date: 20100128
  Receipt Date: 20090406
  Transmission Date: 20100710
  Serious: Yes (Hospitalization)
  Sender: FDA-Public Use
  Company Number: CA-ROCHE-603273

PATIENT
  Sex: Female
  Weight: 48 kg

DRUGS (13)
  1. BEVACIZUMAB [Suspect]
     Dosage: AS PER PROTOCOL FREQUENCY DAY 1 EVERY 3 WEEKS FOR 5 TO 6 CYCLES. 2 TREATMENT CYCLES FURTHER DELAYED.
     Route: 042
     Dates: start: 20080722
  2. CARBOPLATIN [Suspect]
     Dosage: FREQUENCY AS PER PROTOCOL EVERY 3 WEEKS FOR 6 CYCLES.DATE OF RECENT ADMINISTRATION 25 NOVEMBER2008
     Route: 042
     Dates: start: 20080722
  3. PACLITAXEL [Suspect]
     Dosage: FREQUENCY AS PER PROTOCOL EVERY 3 WEEKS FOR 6 CYCLES.DATE OF RECENT ADMINISTRATION:25 NOVEMBER 2008
     Route: 042
     Dates: start: 20080722
  4. STEMETIL [Suspect]
     Indication: DRUG USE FOR UNKNOWN INDICATION
     Route: 048
     Dates: start: 20081211
  5. SENOKOT [Suspect]
     Indication: DRUG USE FOR UNKNOWN INDICATION
     Dosage: DRUG: SENEKOT.
     Route: 048
     Dates: start: 20081211
  6. TYLENOL [Suspect]
     Indication: DRUG USE FOR UNKNOWN INDICATION
     Dosage: TDD:1-2 TAB
     Route: 048
     Dates: start: 20081211
  7. SPIRIVA [Concomitant]
     Route: 050
     Dates: start: 19880101
  8. SYMBICORT [Concomitant]
     Route: 050
     Dates: start: 19880101
  9. DEXAMETHASONE [Concomitant]
     Route: 048
     Dates: start: 20081125, end: 20081128
  10. DEXAMETHASONE [Concomitant]
     Route: 048
     Dates: start: 19880101
  11. ONDANSETRON [Concomitant]
     Route: 048
     Dates: start: 20081125, end: 20081128
  12. EPOGEN [Concomitant]
     Route: 058
     Dates: start: 20081016
  13. VITAMINS NOS [Concomitant]
     Route: 048
     Dates: start: 20081104

REACTIONS (1)
  - SMALL INTESTINAL OBSTRUCTION [None]
